FAERS Safety Report 8243971-8 (Version None)
Quarter: 2012Q1

REPORT INFORMATION
  Report Type: 
  Country: None (occurrence: None)
  Receive Date: 20120329
  Receipt Date: 20120104
  Transmission Date: 20120608
  Serious: No
  Sender: FDA-Public Use
  Company Number: US-MYLANLABS-2011S1022365

PATIENT
  Sex: Female

DRUGS (3)
  1. ESTRADIOL [Suspect]
     Indication: HORMONE THERAPY
     Route: 062
     Dates: start: 20111115
  2. ESTRADIOL [Suspect]
     Indication: HOT FLUSH
     Route: 062
     Dates: start: 20111115
  3. ESTRADIOL [Suspect]
     Indication: MENOPAUSE
     Route: 062
     Dates: start: 20111115

REACTIONS (1)
  - HORMONE LEVEL ABNORMAL [None]
